FAERS Safety Report 5108555-9 (Version None)
Quarter: 2006Q3

REPORT INFORMATION
  Report Type: 
  Country: None (occurrence: None)
  Receive Date: 20060911
  Receipt Date: 20060825
  Transmission Date: 20061208
  Serious: Yes (Other)
  Sender: FDA-Public Use
  Company Number: GAM-064-05-BR

PATIENT
  Age: 34 Year
  Sex: Female

DRUGS (2)
  1. OCTAGAM [Suspect]
     Indication: RENAL TRANSPLANT
     Dosage: 1000 MG/KG
     Route: 042
  2. ACCU-CHEK ADVANTAGE SYSTEM (BLOOD GLUCOSE MONITORING DEVICE) [Suspect]
     Dates: start: 20050101

REACTIONS (14)
  - BLOOD CALCIUM DECREASED [None]
  - BLOOD GLUCOSE DECREASED [None]
  - BLOOD MAGNESIUM DECREASED [None]
  - DEHYDRATION [None]
  - DEPRESSED LEVEL OF CONSCIOUSNESS [None]
  - DEVICE MALFUNCTION [None]
  - DIABETES MELLITUS [None]
  - DRY MOUTH [None]
  - FALSE POSITIVE LABORATORY RESULT [None]
  - HYPERHIDROSIS [None]
  - HYPEROSMOLAR STATE [None]
  - INCORRECT DOSE ADMINISTERED [None]
  - LABORATORY TEST INTERFERENCE [None]
  - TETANY [None]
